FAERS Safety Report 8178244-5 (Version None)
Quarter: 2012Q1

REPORT INFORMATION
  Report Type: 
  Country: None (occurrence: None)
  Receive Date: 20120301
  Receipt Date: 20120227
  Transmission Date: 20120608
  Serious: Yes (Death, Life-Threatening, Hospitalization, Other)
  Sender: FDA-Public Use
  Company Number: US-ELI_LILLY_AND_COMPANY-US201202008220

PATIENT
  Sex: Male

DRUGS (19)
  1. LISINOPRIL AND HYDROCHLOROTHIAZIDE [Concomitant]
  2. DAPAGLIFLOZIN [Concomitant]
     Indication: TYPE 2 DIABETES MELLITUS
     Dosage: 10 MG, QD
     Route: 048
     Dates: start: 20100608, end: 20110208
  3. CRESTOR [Concomitant]
  4. VENTOLIN [Concomitant]
     Dosage: UNK
     Route: 055
     Dates: start: 20110103
  5. ZEBETA [Concomitant]
     Dosage: UNK
     Dates: start: 20101014
  6. ACTOS [Concomitant]
  7. ATENOLOL [Concomitant]
  8. ASPIRIN [Concomitant]
  9. ADVAIR DISKUS 100/50 [Concomitant]
     Dosage: UNK
     Dates: end: 20101112
  10. PROPYLENE GLYCOL [Concomitant]
     Dosage: UNK
     Dates: start: 20100823
  11. IMDUR [Concomitant]
  12. NEURONTIN [Concomitant]
  13. MOTRIN [Concomitant]
     Dosage: UNK
     Dates: start: 20100507
  14. ADVAIR DISKUS 100/50 [Concomitant]
     Dosage: UNK
     Dates: start: 20101214
  15. GLUCOPHAGE [Concomitant]
  16. AVODART [Concomitant]
     Dosage: UNK
     Dates: start: 20100608
  17. EFFIENT [Suspect]
     Dosage: UNK
  18. AZITHROMYCIN [Concomitant]
     Dosage: UNK
     Dates: start: 20101220
  19. VANTIN [Concomitant]
     Dosage: UNK
     Dates: start: 20110104, end: 20110110

REACTIONS (7)
  - NEOPLASM MALIGNANT [None]
  - COUGH [None]
  - METASTASES TO CENTRAL NERVOUS SYSTEM [None]
  - LUNG NEOPLASM MALIGNANT [None]
  - ANGINA UNSTABLE [None]
  - WEIGHT DECREASED [None]
  - LOSS OF CONSCIOUSNESS [None]
